FAERS Safety Report 9342259 (Version 2)
Quarter: 2013Q4

REPORT INFORMATION
  Report Type: Spontaneous
  Country: ES (occurrence: ES)
  Receive Date: 20130611
  Receipt Date: 20131018
  Transmission Date: 20140711
  Serious: Yes (Hospitalization, Other)
  Sender: FDA-Public Use
  Company Number: ES-ASTRAZENECA-2013SE40501

PATIENT
  Age: 76 Year
  Sex: Male

DRUGS (8)
  1. ESOMEPRAZOLE [Suspect]
     Indication: BARRETT^S OESOPHAGUS
     Route: 048
     Dates: start: 2003, end: 201201
  2. OMEPRAZOLE [Suspect]
     Route: 048
     Dates: start: 20120131
  3. VALSARTAN [Concomitant]
  4. MANIDIPINE [Concomitant]
  5. METFORMIN [Concomitant]
  6. LOW-MOLECULAR-WEIGHT HEPARIN [Concomitant]
     Indication: COAGULOPATHY
  7. ATORVASTATIN [Concomitant]
  8. LEVETIRACETAM [Concomitant]
     Indication: EPILEPSY

REACTIONS (6)
  - Hypocalcaemia [Recovering/Resolving]
  - Arrhythmia supraventricular [Recovering/Resolving]
  - Ventricular extrasystoles [Recovering/Resolving]
  - Confusional state [Recovering/Resolving]
  - Hypomagnesaemia [Recovering/Resolving]
  - Dyslipidaemia [Recovered/Resolved]
